FAERS Safety Report 5417477-5 (Version None)
Quarter: 2007Q3

REPORT INFORMATION
  Report Type: 
  Country: None (occurrence: None)
  Receive Date: 20070816
  Receipt Date: 20070807
  Transmission Date: 20080115
  Serious: Yes (Other)
  Sender: FDA-Public Use
  Company Number: US-TYCO HEALTHCARE/MALLINCKRODT-T200700913

PATIENT

DRUGS (2)
  1. SODIUM IODIDE I 131 [Suspect]
     Indication: ISOTOPE THERAPY TO THYROID
  2. BETA BLOCKING AGENTS [Concomitant]

REACTIONS (1)
  - THYROTOXIC PERIODIC PARALYSIS [None]
